FAERS Safety Report 4303864-5 (Version None)
Quarter: 2004Q1

REPORT INFORMATION
  Report Type: 
  Country: None (occurrence: None)
  Receive Date: 20040225
  Receipt Date: 20040224
  Transmission Date: 20041129
  Serious: Yes (Hospitalization)
  Sender: FDA-Public Use
  Company Number: US-GLAXOSMITHKLINE-A0499604A

PATIENT
  Age: 59 Year
  Sex: Female

DRUGS (4)
  1. HYCAMTIN [Suspect]
     Indication: OVARIAN CANCER
     Route: 042
  2. CARBOPLATIN [Concomitant]
  3. INSULIN [Concomitant]
  4. GLUCOPHAGE [Concomitant]

REACTIONS (2)
  - GASTRITIS [None]
  - GASTROINTESTINAL HAEMORRHAGE [None]
